FAERS Safety Report 4316639-8 (Version None)
Quarter: 2004Q1

REPORT INFORMATION
  Report Type: 
  Country: None (occurrence: None)
  Receive Date: 20040311
  Receipt Date: 20040302
  Transmission Date: 20041129
  Serious: Yes (Hospitalization)
  Sender: FDA-Public Use
  Company Number: WAES 0403USA00329

PATIENT
  Age: 47 Year
  Sex: Female

DRUGS (4)
  1. INDOCIN [Suspect]
  2. FENTANYL [Concomitant]
  3. INTERFERON GAMMA-1B [Concomitant]
  4. MIDAZOLAM HCL [Concomitant]

REACTIONS (3)
  - ACQUIRED OESOPHAGEAL WEB [None]
  - HAEMATEMESIS [None]
  - REFLUX OESOPHAGITIS [None]
